FAERS Safety Report 5139730-5 (Version None)
Quarter: 2006Q4

REPORT INFORMATION
  Report Type: 
  Country: None (occurrence: None)
  Receive Date: 20061024
  Receipt Date: 20061010
  Transmission Date: 20070319
  Serious: Yes (Hospitalization, Other)
  Sender: FDA-Public Use
  Company Number: A-JP2006-13117

PATIENT
  Age: 25 Year
  Sex: Female
  Weight: 64 kg

DRUGS (9)
  1. TRACLEER [Suspect]
     Indication: PULMONARY HYPERTENSION
     Dosage: SEE IMAGE
     Dates: start: 20060524, end: 20060528
  2. TRACLEER [Suspect]
     Indication: PULMONARY HYPERTENSION
     Dosage: SEE IMAGE
     Dates: start: 20060529, end: 20060607
  3. TRACLEER [Suspect]
     Indication: PULMONARY HYPERTENSION
     Dosage: SEE IMAGE
     Dates: start: 20060608, end: 20060608
  4. TRACLEER [Suspect]
     Indication: PULMONARY HYPERTENSION
     Dosage: SEE IMAGE
     Dates: start: 20060609, end: 20060627
  5. TRACLEER [Suspect]
     Indication: PULMONARY HYPERTENSION
     Dosage: SEE IMAGE
     Dates: start: 20060628, end: 20060703
  6. REBAMIPIDE (REBAMIPIDE) [Concomitant]
  7. SENNOSIDE (SENNOSIDE A) [Concomitant]
  8. BERAPROST SODIUM (BERAPROST SODIUM) [Concomitant]
  9. OXYGEN (OXYGEN) [Concomitant]

REACTIONS (8)
  - ALANINE AMINOTRANSFERASE INCREASED [None]
  - ASPARTATE AMINOTRANSFERASE INCREASED [None]
  - BLOOD BILIRUBIN INCREASED [None]
  - DECREASED APPETITE [None]
  - DIZZINESS [None]
  - HEPATIC FUNCTION ABNORMAL [None]
  - MALAISE [None]
  - PLATELET COUNT DECREASED [None]
